FAERS Safety Report 13454114 (Version 1)
Quarter: 2017Q2

REPORT INFORMATION
  Report Type: Spontaneous
  Country: US (occurrence: US)
  Receive Date: 20170418
  Receipt Date: 20170418
  Transmission Date: 20170830
  Serious: No
  Sender: FDA-Public Use
  Company Number: US-ALLERGAN-1672196US

PATIENT
  Sex: Female

DRUGS (2)
  1. REFRESH [Concomitant]
     Active Substance: UNSPECIFIED INGREDIENT
     Indication: PRODUCT USED FOR UNKNOWN INDICATION
     Route: 047
  2. LUMIGAN [Suspect]
     Active Substance: BIMATOPROST
     Indication: INTRAOCULAR PRESSURE INCREASED
     Dosage: 2 GTT, QHS
     Route: 047
     Dates: start: 2014

REACTIONS (5)
  - Ocular hyperaemia [Recovering/Resolving]
  - Anxiety [Recovered/Resolved]
  - Discomfort [Recovered/Resolved]
  - Vision blurred [Recovered/Resolved]
  - Eye pruritus [Recovered/Resolved]
